FAERS Safety Report 9714421 (Version 2)
Quarter: 2013Q4

REPORT INFORMATION
  Report Type: Spontaneous
  Country: US (occurrence: US)
  Receive Date: 20131126
  Receipt Date: 20131203
  Transmission Date: 20140711
  Serious: No
  Sender: FDA-Public Use
  Company Number: US-TEVA-446246USA

PATIENT
  Age: 2 Year
  Sex: Female
  Weight: 11.8 kg

DRUGS (1)
  1. COPAXONE [Suspect]
     Indication: PRODUCT USED FOR UNKNOWN INDICATION
     Route: 048

REACTIONS (3)
  - Rash macular [Recovered/Resolved]
  - Accidental exposure to product by child [Recovered/Resolved]
  - Incorrect route of drug administration [Recovered/Resolved]
